FAERS Safety Report 19698841 (Version 2)
Quarter: 2021Q3

REPORT INFORMATION
  Report Type: Spontaneous
  Country: DE (occurrence: DE)
  Receive Date: 20210813
  Receipt Date: 20210921
  Transmission Date: 20211014
  Serious: Yes (Other)
  Sender: FDA-Public Use
  Company Number: DE-PFIZER INC-202100982560

PATIENT
  Age: 65 Year
  Sex: Female

DRUGS (5)
  1. CALCIMAGON D3 [Concomitant]
     Active Substance: CALCIUM\CHOLECALCIFEROL
     Dosage: 500 MG
     Route: 048
  2. PANTOPRAZOLE [Concomitant]
     Active Substance: PANTOPRAZOLE
     Dosage: 40 MG
     Route: 048
  3. LETRO CELL [Concomitant]
     Dosage: 2.5 MG, DAILY
     Route: 048
  4. ELERON [FOLIC ACID;IRON] [Concomitant]
     Dosage: 50 MG
     Route: 048
  5. IBRANCE [Suspect]
     Active Substance: PALBOCICLIB
     Indication: BREAST CANCER METASTATIC
     Dosage: 125 MG, DAILY (D1 ? 21 QHW)
     Route: 048
     Dates: start: 20210312, end: 20210706

REACTIONS (4)
  - C-reactive protein increased [Recovering/Resolving]
  - Pulmonary toxicity [Recovering/Resolving]
  - Cough [Unknown]
  - Pyrexia [Unknown]

NARRATIVE: CASE EVENT DATE: 202105
